FAERS Safety Report 13930461 (Version 3)
Quarter: 2017Q4

REPORT INFORMATION
  Report Type: Spontaneous
  Country: US (occurrence: US)
  Receive Date: 20170901
  Receipt Date: 20171017
  Transmission Date: 20180320
  Serious: No
  Sender: FDA-Public Use
  Company Number: US-PFIZER INC-2017381150

PATIENT
  Sex: Female
  Weight: 58 kg

DRUGS (2)
  1. ADVIL [Suspect]
     Active Substance: IBUPROFEN
     Indication: SCIATICA
     Dosage: UNK
     Dates: end: 20170829
  2. ADVIL [Suspect]
     Active Substance: IBUPROFEN
     Indication: BACK DISORDER

REACTIONS (4)
  - Acne [Unknown]
  - Pruritus [Recovered/Resolved]
  - Rash erythematous [Unknown]
  - Intentional product misuse [Unknown]

NARRATIVE: CASE EVENT DATE: 20170828
